FAERS Safety Report 12536621 (Version 2)
Quarter: 2016Q3

REPORT INFORMATION
  Report Type: Spontaneous
  Country: US (occurrence: US)
  Receive Date: 20160707
  Receipt Date: 20160816
  Transmission Date: 20161109
  Serious: No
  Sender: FDA-Public Use
  Company Number: US-PFIZER INC-2016291687

PATIENT
  Age: 65 Year
  Sex: Male
  Weight: 86 kg

DRUGS (8)
  1. LEVOTHYROXINE. [Concomitant]
     Active Substance: LEVOTHYROXINE
     Indication: THYROID DISORDER
     Dosage: 100 MG, 1X/DAY
     Dates: start: 2013
  2. MAGNESIUM CALCIUM [Concomitant]
     Dosage: 143 MG, DAILY
  3. FLUDROCORTISONE [Concomitant]
     Active Substance: FLUDROCORTISONE
     Indication: TRANSPLANT REJECTION
     Dosage: 0.1 MG, 1X/DAY
     Dates: start: 2014
  4. RAPAMUNE [Suspect]
     Active Substance: SIROLIMUS
     Dosage: 3.5MG, TABLETS, PER DAY, IN THE MORNING
     Dates: start: 2016
  5. TACROLIMUS. [Concomitant]
     Active Substance: TACROLIMUS
     Indication: TRANSPLANT REJECTION
     Dosage: 2MG AM, 2MG PM DAILY
     Dates: start: 2013
  6. CELLCEPT [Concomitant]
     Active Substance: MYCOPHENOLATE MOFETIL\MYCOPHENOLATE MOFETIL HYDROCHLORIDE
     Indication: TRANSPLANT REJECTION
     Dosage: 250 MG, ONE IN AM AND ONE IN PM DAILY
     Dates: start: 2013
  7. RAPAMUNE [Suspect]
     Active Substance: SIROLIMUS
     Indication: TRANSPLANT REJECTION
     Dosage: 3.5MG, TABLETS, PER DAY, IN THE MORNING
     Dates: start: 2016
  8. SIMVASTATIN. [Concomitant]
     Active Substance: SIMVASTATIN
     Indication: ANTIBIOTIC PROPHYLAXIS
     Dosage: 10MG PM DAILY ONCE
     Dates: start: 2013

REACTIONS (3)
  - Product use issue [Unknown]
  - Rash [Not Recovered/Not Resolved]
  - Mouth ulceration [Not Recovered/Not Resolved]

NARRATIVE: CASE EVENT DATE: 201603
